FAERS Safety Report 7619701-7 (Version None)
Quarter: 2011Q3

REPORT INFORMATION
  Report Type: 
  Country: None (occurrence: None)
  Receive Date: 20110719
  Receipt Date: 20110713
  Transmission Date: 20111222
  Serious: Yes (Other)
  Sender: FDA-Public Use
  Company Number: US-AMGEN-USASP2011032913

PATIENT
  Age: 50 Year
  Sex: Female

DRUGS (3)
  1. ENBREL [Suspect]
     Indication: PSORIASIS
     Dosage: UNK
  2. PANTOPRAZOLE SODIUM [Concomitant]
     Indication: GASTROOESOPHAGEAL REFLUX DISEASE
     Dosage: UNK
  3. HUMIRA [Concomitant]
     Indication: PSORIASIS
     Dosage: 40 MG, UNK
     Route: 065
     Dates: start: 20090101, end: 20100501

REACTIONS (6)
  - PSORIASIS [None]
  - OVARIAN CYST [None]
  - MALAISE [None]
  - MENORRHAGIA [None]
  - DRUG INEFFECTIVE [None]
  - INFECTED BITES [None]
